FAERS Safety Report 8315734 (Version 3)
Quarter: 2012Q4

REPORT INFORMATION
  Report Type: 
  Country: US (occurrence: US)
  Receive Date: 20111229
  Receipt Date: 20121017
  Transmission Date: 20130627
  Serious: Yes (Hospitalization, Other)
  Sender: FDA-Public Use
  Company Number: US-MILLENNIUM PHARMACEUTICALS, INC.-2011-06562

PATIENT
  Age: 58 Year
  Sex: Male
  Weight: 87.98 kg

DRUGS (3)
  1. VELCADE [Suspect]
     Indication: MULTIPLE MYELOMA
     Dosage: 2.7 mg, Cyclic
     Route: 042
     Dates: start: 20110517, end: 20110929
  2. CYCLOPHOSPHAMIDE [Suspect]
     Indication: MULTIPLE MYELOMA
     Dosage: UNK mg, Cyclic
     Route: 048
  3. DEXAMETHASONE [Suspect]
     Indication: MULTIPLE MYELOMA
     Dosage: UNK

REACTIONS (6)
  - Hemianopia homonymous [Recovered/Resolved]
  - Anal fistula [Unknown]
  - Haemorrhoidal haemorrhage [Not Recovered/Not Resolved]
  - Perirectal abscess [Recovered/Resolved with Sequelae]
  - Syncope [Recovered/Resolved]
  - Headache [Unknown]
